FAERS Safety Report 19256815 (Version 9)
Quarter: 2022Q1

REPORT INFORMATION
  Report Type: Report from Study
  Country: US (occurrence: US)
  Receive Date: 20210514
  Receipt Date: 20220217
  Transmission Date: 20220423
  Serious: Yes (Other)
  Sender: FDA-Public Use
  Company Number: US-NOVARTISPH-NVSC2021US099585

PATIENT
  Age: 43 Year
  Sex: Female

DRUGS (2)
  1. KESIMPTA [Suspect]
     Active Substance: OFATUMUMAB
     Indication: Relapsing multiple sclerosis
     Dosage: 20 MG, QMO
     Route: 058
     Dates: start: 20210424
  2. KESIMPTA [Suspect]
     Active Substance: OFATUMUMAB
     Dosage: 20 MG, QW (20MG/0.4ML)
     Route: 058
     Dates: start: 20210508

REACTIONS (26)
  - Eye infection bacterial [Unknown]
  - Blindness unilateral [Unknown]
  - Gastric ulcer [Not Recovered/Not Resolved]
  - Migraine [Recovered/Resolved]
  - Hot flush [Unknown]
  - Electric shock sensation [Unknown]
  - Nausea [Recovered/Resolved]
  - Throat irritation [Unknown]
  - Asthenia [Unknown]
  - Eye disorder [Recovering/Resolving]
  - Feeling cold [Unknown]
  - Hyperhidrosis [Unknown]
  - Night sweats [Unknown]
  - Decreased appetite [Unknown]
  - Ear pruritus [Recovered/Resolved]
  - Urinary tract infection [Recovering/Resolving]
  - Pyrexia [Recovered/Resolved]
  - Headache [Recovered/Resolved]
  - Headache [Unknown]
  - Nausea [Unknown]
  - COVID-19 [Recovered/Resolved]
  - Pyrexia [Unknown]
  - Fatigue [Unknown]
  - Myalgia [Unknown]
  - Dyspnoea [Unknown]
  - Pain [Unknown]

NARRATIVE: CASE EVENT DATE: 20210508
